FAERS Safety Report 17447540 (Version 1)
Quarter: 2020Q1

REPORT INFORMATION
  Report Type: Spontaneous
  Country: FR (occurrence: FR)
  Receive Date: 20200221
  Receipt Date: 20200221
  Transmission Date: 20200409
  Serious: Yes (Life-Threatening)
  Sender: FDA-Public Use
  Company Number: FR-ANIPHARMA-2020-FR-000056

PATIENT
  Age: 70 Year
  Sex: Female
  Weight: 100 kg

DRUGS (13)
  1. INSULIN DEGLUDEC+LIRAGLUTIDE [Concomitant]
     Dosage: UNK
     Route: 065
  2. FEMARA [Concomitant]
     Active Substance: LETROZOLE
     Dosage: UNK
     Route: 065
  3. STAGID [Suspect]
     Active Substance: METFORMIN PAMOATE
     Dosage: 2 DF QD
     Route: 048
     Dates: end: 20191218
  4. CANDESARTAN. [Suspect]
     Active Substance: CANDESARTAN
     Indication: HYPERTENSION
     Dosage: 16 MG QD
     Route: 048
     Dates: end: 20191218
  5. FUROSEMIDE. [Suspect]
     Active Substance: FUROSEMIDE
     Dosage: 40 MG QD
     Route: 048
     Dates: end: 20191218
  6. IPRATROPIUM BROMIDE\FENOTEROL HYDROBROMIDE [Suspect]
     Active Substance: FENOTEROL HYDROBROMIDE\IPRATROPIUM BROMIDE
     Dosage: 3 DF DAILY
     Route: 055
     Dates: end: 20191218
  7. OXEOL [Suspect]
     Active Substance: BAMBUTEROL HYDROCHLORIDE
     Dosage: UNK
     Route: 048
     Dates: end: 20191218
  8. HUMALOG [Concomitant]
     Active Substance: INSULIN LISPRO
     Dosage: UNK
     Route: 065
  9. RABEPRAZOLE [Concomitant]
     Active Substance: RABEPRAZOLE
     Dosage: UNK
     Route: 065
  10. ZOPICLONE [Concomitant]
     Active Substance: ZOPICLONE
     Dosage: UNK
     Route: 065
  11. PAROXETINE. [Suspect]
     Active Substance: PAROXETINE
     Dosage: 20 MG QD
     Route: 048
     Dates: end: 20191218
  12. KARDEGIC [Concomitant]
     Active Substance: ASPIRIN DL-LYSINE
     Dosage: UNK
     Route: 065
  13. ATORVASTATIN [Concomitant]
     Active Substance: ATORVASTATIN
     Dosage: UNK
     Route: 065

REACTIONS (3)
  - Acute kidney injury [Recovering/Resolving]
  - Lactic acidosis [Recovered/Resolved]
  - Hyperkalaemia [Recovered/Resolved]

NARRATIVE: CASE EVENT DATE: 20191218
